FAERS Safety Report 19513053 (Version 2)
Quarter: 2021Q3

REPORT INFORMATION
  Report Type: Spontaneous
  Country: US (occurrence: US)
  Receive Date: 20210709
  Receipt Date: 20210830
  Transmission Date: 20211014
  Serious: No
  Sender: FDA-Public Use
  Company Number: US-ASTRAZENECA-2021A559024

PATIENT
  Age: 20677 Day
  Sex: Female
  Weight: 131.5 kg

DRUGS (2)
  1. FASENRA [Concomitant]
     Active Substance: BENRALIZUMAB
     Route: 058
  2. FASENRA [Suspect]
     Active Substance: BENRALIZUMAB
     Route: 058

REACTIONS (4)
  - Inappropriate schedule of product administration [Not Recovered/Not Resolved]
  - Dyspnoea [Not Recovered/Not Resolved]
  - Device issue [Unknown]
  - Device leakage [Unknown]

NARRATIVE: CASE EVENT DATE: 20210623
